FAERS Safety Report 18150211 (Version 2)
Quarter: 2020Q3

REPORT INFORMATION
  Report Type: Report from Study
  Country: US (occurrence: US)
  Receive Date: 20200814
  Receipt Date: 20200911
  Transmission Date: 20201103
  Serious: Yes (Hospitalization)
  Sender: FDA-Public Use
  Company Number: US-EISAI MEDICAL RESEARCH-EC-2020-078029

PATIENT
  Age: 70 Year
  Sex: Male
  Weight: 100.9 kg

DRUGS (12)
  1. TRESIBA [Concomitant]
     Active Substance: INSULIN DEGLUDEC
  2. AMIODARONE [Concomitant]
     Active Substance: AMIODARONE
  3. METHOCARBAMOL. [Concomitant]
     Active Substance: METHOCARBAMOL
  4. ZOFRAN [Concomitant]
     Active Substance: ONDANSETRON HYDROCHLORIDE
  5. CARVEDILOL. [Concomitant]
     Active Substance: CARVEDILOL
  6. HYDRALAZINE [Concomitant]
     Active Substance: HYDRALAZINE HYDROCHLORIDE
  7. TAMSULOSIN [Concomitant]
     Active Substance: TAMSULOSIN
  8. GLIMEPIRIDE. [Concomitant]
     Active Substance: GLIMEPIRIDE
  9. NOVOLOG [Concomitant]
     Active Substance: INSULIN ASPART
  10. LENVIMA [Suspect]
     Active Substance: LENVATINIB
     Indication: HEPATOCELLULAR CARCINOMA
     Route: 048
     Dates: start: 20200412, end: 20200830
  11. PEMBROLIZUMAB. [Concomitant]
     Active Substance: PEMBROLIZUMAB
  12. XARELTO [Concomitant]
     Active Substance: RIVAROXABAN

REACTIONS (4)
  - Ascites [Unknown]
  - Fatigue [Unknown]
  - Gastrointestinal haemorrhage [Unknown]
  - Abdominal pain lower [Not Recovered/Not Resolved]

NARRATIVE: CASE EVENT DATE: 2020
